FAERS Safety Report 5722345-5 (Version None)
Quarter: 2008Q2

REPORT INFORMATION
  Report Type: 
  Country: None (occurrence: None)
  Receive Date: 20080429
  Receipt Date: 20070904
  Transmission Date: 20081010
  Serious: No
  Sender: FDA-Public Use
  Company Number: US-ASTRAZENECA-2007UW20776

PATIENT
  Sex: Female

DRUGS (10)
  1. NEXIUM [Suspect]
     Route: 048
     Dates: start: 20070801, end: 20070807
  2. RANITIDINE [Suspect]
     Dates: start: 20050101, end: 20070801
  3. SYMLIN [Suspect]
     Indication: DIABETES MELLITUS
     Route: 058
     Dates: start: 20070101
  4. PREDNISONE [Suspect]
     Dates: start: 20070725, end: 20070730
  5. ANTIBIOTIC [Suspect]
     Dates: start: 20070725, end: 20070801
  6. NEBULIZER TREATMENT [Concomitant]
     Dates: start: 20070725
  7. AVANDIA [Concomitant]
     Dates: start: 20050101, end: 20070601
  8. LANTUS [Concomitant]
     Dates: start: 20060801
  9. GLUCOVANCE [Concomitant]
  10. MAALOX [Concomitant]
     Dates: start: 20070808

REACTIONS (4)
  - ABDOMINAL PAIN UPPER [None]
  - BLOOD GLUCOSE INCREASED [None]
  - DIARRHOEA [None]
  - INCREASED APPETITE [None]
